FAERS Safety Report 14181845 (Version 1)
Quarter: 2017Q4

REPORT INFORMATION
  Report Type: Spontaneous
  Country: IT (occurrence: IT)
  Receive Date: 20171113
  Receipt Date: 20171113
  Transmission Date: 20180321
  Serious: Yes (Other)
  Sender: FDA-Public Use
  Company Number: IT-ROCHE-2021496

PATIENT
  Age: 57 Year
  Sex: Male

DRUGS (1)
  1. RIVOTRIL [Suspect]
     Active Substance: CLONAZEPAM
     Indication: PRODUCT USED FOR UNKNOWN INDICATION
     Dosage: 2.5 MG/ML ORAL DROPS, SOLUTION 10 ML BOTTLE
     Route: 048
     Dates: start: 20170616, end: 20170616

REACTIONS (3)
  - Drug abuse [Unknown]
  - Toxicity to various agents [Recovering/Resolving]
  - Sopor [Recovering/Resolving]

NARRATIVE: CASE EVENT DATE: 20170616
